FAERS Safety Report 12643025 (Version 2)
Quarter: 2016Q3

REPORT INFORMATION
  Report Type: Spontaneous
  Country: US (occurrence: US)
  Receive Date: 20160811
  Receipt Date: 20160824
  Transmission Date: 20161109
  Serious: Yes (Hospitalization)
  Sender: FDA-Public Use
  Company Number: US-HORIZON-RAV-0151-2016

PATIENT
  Age: 9 Year
  Sex: Male
  Weight: 36.3 kg

DRUGS (3)
  1. RAVICTI [Suspect]
     Active Substance: GLYCEROL PHENYLBUTYRATE
     Indication: ORNITHINE TRANSCARBAMOYLASE DEFICIENCY
     Dosage: 5.5 ML TID
  2. CITRULLINE [Concomitant]
     Active Substance: CITRULLINE
     Dosage: 2000 MG DAILY, RECENTLY INCREASED FROM 1000 MG DAILY
  3. CARNITINE [Concomitant]
     Active Substance: CARNITINE

REACTIONS (9)
  - Vomiting [Recovered/Resolved]
  - Retching [Unknown]
  - Hyperammonaemia [Unknown]
  - Mental status changes [Recovered/Resolved]
  - Diarrhoea [Recovered/Resolved]
  - Metabolic disorder [Recovered/Resolved]
  - Somnolence [Unknown]
  - Urinary tract infection [Recovered/Resolved]
  - Seizure [Unknown]

NARRATIVE: CASE EVENT DATE: 20160726
